FAERS Safety Report 12875145 (Version 1)
Quarter: 2016Q4

REPORT INFORMATION
  Report Type: Spontaneous
  Country: FR (occurrence: FR)
  Receive Date: 20161024
  Receipt Date: 20161024
  Transmission Date: 20170207
  Serious: Yes (Death)
  Sender: FDA-Public Use
  Company Number: FR-ROCHE-1844702

PATIENT
  Age: 79 Year
  Sex: Female

DRUGS (14)
  1. BACTRIM [Suspect]
     Active Substance: SULFAMETHOXAZOLE\TRIMETHOPRIM
     Indication: LUNG DISORDER
     Route: 048
     Dates: start: 201608, end: 20160915
  2. AMLOR [Concomitant]
     Active Substance: AMLODIPINE BESYLATE
  3. ROVAMYCINE [Suspect]
     Active Substance: SPIRAMYCIN
     Indication: LUNG DISORDER
     Route: 048
     Dates: start: 20160912, end: 20160915
  4. CORTANCYL [Concomitant]
     Active Substance: PREDNISONE
  5. ARANESP [Concomitant]
     Active Substance: DARBEPOETIN ALFA
  6. AUGMENTIN [Suspect]
     Active Substance: AMOXICILLIN\CLAVULANATE POTASSIUM
     Indication: LUNG DISORDER
     Route: 048
     Dates: start: 20160912, end: 20160915
  7. CALCIDOSE (FRANCE) [Concomitant]
     Active Substance: CALCIUM CARBONATE
  8. KARDEGIC [Concomitant]
     Active Substance: ASPIRIN LYSINE
  9. SPASFON (FRANCE) [Concomitant]
     Active Substance: PHLOROGLUCINOL
  10. ROCEPHINE [Suspect]
     Active Substance: CEFTRIAXONE SODIUM
     Indication: POLLAKIURIA
     Route: 030
     Dates: start: 20160909, end: 20160912
  11. DOLIPRANE [Concomitant]
     Active Substance: ACETAMINOPHEN
  12. CELLCEPT [Concomitant]
     Active Substance: MYCOPHENOLATE MOFETIL\MYCOPHENOLATE MOFETIL HYDROCHLORIDE
     Route: 065
  13. LEDERFOLINE [Concomitant]
     Active Substance: LEUCOVORIN CALCIUM
  14. PANTOPRAZOLE [Concomitant]
     Active Substance: PANTOPRAZOLE SODIUM

REACTIONS (1)
  - Hepatic failure [Fatal]

NARRATIVE: CASE EVENT DATE: 20160915
